FAERS Safety Report 17990684 (Version 1)
Quarter: 2020Q3

REPORT INFORMATION
  Report Type: Spontaneous
  Country: None (occurrence: US)
  Receive Date: 20200707
  Receipt Date: 20200707
  Transmission Date: 20201103
  Serious: No
  Sender: FDA-Public Use
  Company Number: US-BRECKENRIDGE PHARMACEUTICAL, INC.-2087112

PATIENT
  Sex: Male

DRUGS (1)
  1. OXCARBAZEPINE TABLET, FILM COATED [Suspect]
     Active Substance: OXCARBAZEPINE
     Indication: BIPOLAR DISORDER
     Route: 048

REACTIONS (8)
  - Neck pain [None]
  - Abdominal discomfort [None]
  - Muscle spasms [None]
  - Vision blurred [None]
  - Headache [None]
  - Back pain [None]
  - Cerebral disorder [None]
  - Dizziness [None]
